FAERS Safety Report 4325330-3 (Version None)
Quarter: 2004Q1

REPORT INFORMATION
  Report Type: 
  Country: None (occurrence: None)
  Receive Date: 20040326
  Receipt Date: 20040326
  Transmission Date: 20041129
  Serious: Yes (Other)
  Sender: FDA-Public Use
  Company Number: None

PATIENT
  Sex: Female
  Weight: 56.6996 kg

DRUGS (1)
  1. ORTHOTRICYCLEN ORTH-MCNEIL [Suspect]
     Indication: CONTRACEPTION
     Dosage: QD ORAL
     Route: 048
     Dates: start: 20020601, end: 20020811

REACTIONS (1)
  - OVARIAN CYST [None]
